FAERS Safety Report 10745458 (Version 1)
Quarter: 2015Q1

REPORT INFORMATION
  Report Type: Spontaneous
  Country: US (occurrence: None)
  Receive Date: 20150120
  Receipt Date: 20150120
  Transmission Date: 20150721
  Serious: No
  Sender: FDA-Public Use
  Company Number: AEGR000945

PATIENT
  Age: 67 Year
  Sex: Female
  Weight: 174.6 kg

DRUGS (7)
  1. CLARITIN [Concomitant]
     Active Substance: LORATADINE
  2. CYANOCOBALAMIN. [Concomitant]
     Active Substance: CYANOCOBALAMIN
  3. JUXTAPID [Suspect]
     Active Substance: LOMITAPIDE MESYLATE
     Indication: TYPE IIA HYPERLIPIDAEMIA
     Route: 048
     Dates: start: 20141025, end: 20141125
  4. GABAPENTIN. [Concomitant]
     Active Substance: GABAPENTIN
  5. MAGNESIUM OXIDE. [Concomitant]
     Active Substance: MAGNESIUM OXIDE
  6. SODIUM BICARBONATE. [Concomitant]
     Active Substance: SODIUM BICARBONATE
  7. SINGULAIR [Concomitant]
     Active Substance: MONTELUKAST SODIUM

REACTIONS (5)
  - Diarrhoea [None]
  - Therapy cessation [None]
  - Weight decreased [None]
  - Liver function test abnormal [None]
  - Blood bilirubin increased [None]

NARRATIVE: CASE EVENT DATE: 201410
